FAERS Safety Report 6443515-7 (Version None)
Quarter: 2009Q4

REPORT INFORMATION
  Report Type: 
  Country: None (occurrence: None)
  Receive Date: 20091116
  Receipt Date: 20091104
  Transmission Date: 20100525
  Serious: Yes (Death)
  Sender: FDA-Public Use
  Company Number: 427342

PATIENT
  Age: 43 Year
  Sex: Male

DRUGS (2)
  1. ETOPOSIDE [Suspect]
     Indication: ACUTE MYELOID LEUKAEMIA
  2. BUSULFAN [Suspect]
     Indication: ACUTE MYELOID LEUKAEMIA

REACTIONS (7)
  - ANAEMIA [None]
  - BLAST CELL COUNT INCREASED [None]
  - BONE MARROW TRANSPLANT [None]
  - DYSPLASIA [None]
  - GRANULOCYTES ABNORMAL [None]
  - THROMBOCYTOPENIA [None]
  - WHITE BLOOD CELL MORPHOLOGY ABNORMAL [None]
